FAERS Safety Report 13056528 (Version 1)
Quarter: 2016Q4

REPORT INFORMATION
  Report Type: Report from Study
  Country: BR (occurrence: BR)
  Receive Date: 20161222
  Receipt Date: 20161222
  Transmission Date: 20170207
  Serious: Yes (Other)
  Sender: FDA-Public Use
  Company Number: PHHY2016BR176355

PATIENT
  Sex: Female
  Weight: 68 kg

DRUGS (1)
  1. EXELON PATCH [Suspect]
     Active Substance: RIVASTIGMINE
     Indication: DEMENTIA
     Dosage: 1 DF, QD
     Route: 062

REACTIONS (4)
  - Cerebrovascular accident [Unknown]
  - Anxiety [Unknown]
  - Anal incontinence [Unknown]
  - Product use issue [Unknown]
